FAERS Safety Report 4474683-4 (Version None)
Quarter: 2004Q4

REPORT INFORMATION
  Report Type: 
  Country: None (occurrence: None)
  Receive Date: 20041012
  Receipt Date: 20040929
  Transmission Date: 20050328
  Serious: Yes (Hospitalization, Disabling)
  Sender: FDA-Public Use
  Company Number: 2004SE00359

PATIENT
  Age: 50 Year
  Sex: Female
  Weight: 73 kg

DRUGS (6)
  1. ZOLADEX [Suspect]
     Indication: UTERINE LEIOMYOMA
     Dosage: 10.8 MG ONCE SQ
     Route: 058
     Dates: start: 20011210
  2. ZOLADEX [Suspect]
     Indication: UTERINE LEIOMYOMA
     Dosage: 3.6 MG ONCE SQ
     Route: 058
     Dates: start: 20020305
  3. JECTOFER [Concomitant]
  4. LEVONORGESTREL AND ETHINYL ESTRADIOL [Concomitant]
  5. CARBASALATE CALCIUM [Concomitant]
  6. FERROGRAD [Concomitant]

REACTIONS (1)
  - BRAIN STEM INFARCTION [None]
